FAERS Safety Report 4709391-5 (Version None)
Quarter: 2005Q3

REPORT INFORMATION
  Report Type: 
  Country: None (occurrence: None)
  Receive Date: 20050708
  Receipt Date: 20050704
  Transmission Date: 20060218
  Serious: Yes (Hospitalization)
  Sender: FDA-Public Use
  Company Number: PHNR2005AU01067

PATIENT
  Age: 7 Year
  Weight: 23 kg

DRUGS (2)
  1. DEXAMFETAMINE SULFATE [Suspect]
     Indication: ABNORMAL BEHAVIOUR
     Dosage: 10 MG, QD
     Route: 048
     Dates: start: 20040415, end: 20040615
  2. RITALIN [Suspect]
     Indication: ABNORMAL BEHAVIOUR
     Dosage: 10 MG, QD
     Route: 048
     Dates: start: 20040715, end: 20040915

REACTIONS (2)
  - ANXIETY [None]
  - OBSESSIVE-COMPULSIVE DISORDER [None]
